FAERS Safety Report 6324623-8 (Version None)
Quarter: 2009Q3

REPORT INFORMATION
  Report Type: 
  Country: None (occurrence: None)
  Receive Date: 20090824
  Receipt Date: 20090508
  Transmission Date: 20100115
  Serious: No
  Sender: FDA-Public Use
  Company Number: US-ABBOTT-09P-163-0572353-00

PATIENT
  Sex: Male

DRUGS (4)
  1. NIASPAN [Suspect]
     Indication: HIGH DENSITY LIPOPROTEIN DECREASED
     Dates: start: 20090430, end: 20090430
  2. ASPIRIN [Concomitant]
     Indication: DRUG USE FOR UNKNOWN INDICATION
     Route: 048
  3. UNKNOWN CHOLESTEROL PILL [Concomitant]
     Indication: BLOOD CHOLESTEROL
     Dosage: PINK PILL
  4. UNKNOWN HEART PILL [Concomitant]
     Indication: CARDIAC DISORDER
     Dosage: BLUE PILL

REACTIONS (2)
  - BURNING SENSATION [None]
  - FLUSHING [None]
